FAERS Safety Report 8593243-7 (Version None)
Quarter: 2012Q3

REPORT INFORMATION
  Report Type: 
  Country: None (occurrence: None)
  Receive Date: 20120814
  Receipt Date: 20120807
  Transmission Date: 20120928
  Serious: Yes (Hospitalization)
  Sender: FDA-Public Use
  Company Number: JP-VERTEX PHARMACEUTICALS INC.-AE-2012-011962

PATIENT
  Age: 64 Year
  Sex: Male

DRUGS (10)
  1. RIBAVIRIN [Concomitant]
     Route: 048
     Dates: start: 20120606, end: 20120614
  2. LENDORMIN [Concomitant]
     Route: 048
  3. RIBAVIRIN [Concomitant]
     Route: 048
     Dates: start: 20120621, end: 20120712
  4. LANSOPRAZOLE [Concomitant]
     Route: 048
  5. RIBAVIRIN [Concomitant]
     Route: 048
     Dates: start: 20120713
  6. PEGINTERFERON ALFA-2B [Concomitant]
     Indication: HEPATITIS C
     Route: 058
     Dates: start: 20120606
  7. AMOBAN [Concomitant]
     Route: 048
  8. RIBAVIRIN [Concomitant]
     Route: 048
     Dates: start: 20120615, end: 20120620
  9. TELAVIC (TELAPREVIR) [Suspect]
     Route: 048
     Dates: start: 20120608
  10. TELAVIC (TELAPREVIR) [Suspect]
     Indication: HEPATITIS C
     Route: 048
     Dates: start: 20120606, end: 20120607

REACTIONS (3)
  - MALAISE [None]
  - RENAL IMPAIRMENT [None]
  - DECREASED APPETITE [None]
